FAERS Safety Report 17983224 (Version 1)
Quarter: 2020Q3

REPORT INFORMATION
  Report Type: Spontaneous
  Country: US (occurrence: US)
  Receive Date: 20200706
  Receipt Date: 20200706
  Transmission Date: 20201103
  Serious: Yes (Death, Other)
  Sender: FDA-Public Use
  Company Number: US-MIKART, LLC-2087039

PATIENT
  Sex: Female

DRUGS (3)
  1. HYDROCODONE BITARTRATE AND ACETAMINOPHEN [Suspect]
     Active Substance: ACETAMINOPHEN\HYDROCODONE BITARTRATE
     Route: 048
  2. COCAINE [Concomitant]
     Active Substance: COCAINE
  3. HEROIN [Concomitant]
     Active Substance: DIAMORPHINE

REACTIONS (3)
  - Death [Fatal]
  - Overdose [Fatal]
  - Dependence [Fatal]
